FAERS Safety Report 9527200 (Version 2)
Quarter: 2013Q4

REPORT INFORMATION
  Report Type: Spontaneous
  Country: FR (occurrence: FR)
  Receive Date: 20130917
  Receipt Date: 20131115
  Transmission Date: 20140711
  Serious: Yes (Life-Threatening, Other)
  Sender: FDA-Public Use
  Company Number: FR-AMGEN-FRASP2013064835

PATIENT
  Age: 33 Year
  Sex: Female
  Weight: 79 kg

DRUGS (3)
  1. ENBREL [Suspect]
     Indication: ANKYLOSING SPONDYLITIS
     Dosage: UNK
     Route: 058
     Dates: start: 201011, end: 201106
  2. ZOLTUM                             /00661201/ [Concomitant]
     Dosage: UNK
  3. CYNOMEL [Concomitant]
     Dosage: UNK

REACTIONS (4)
  - Pulmonary vasculitis [Recovering/Resolving]
  - Pulmonary embolism [Recovering/Resolving]
  - Iridocyclitis [Recovered/Resolved]
  - Vasculitis [Recovering/Resolving]
